FAERS Safety Report 12843504 (Version 1)
Quarter: 2016Q4

REPORT INFORMATION
  Report Type: Spontaneous
  Country: US (occurrence: US)
  Receive Date: 20161013
  Receipt Date: 20161013
  Transmission Date: 20170207
  Serious: Yes (Hospitalization)
  Sender: FDA-Public Use
  Company Number: None

PATIENT
  Age: 75 Year
  Sex: Male
  Weight: 63.56 kg

DRUGS (15)
  1. IC GABAPENTIN 300MG CAPSULE [Suspect]
     Active Substance: GABAPENTIN
     Indication: NEUROPATHY PERIPHERAL
     Dosage: 1 PILL FOR 7 DAYS, 2 PILLS FOR 7 DAYS 1 MORNING, 2 AFTERNOON, MOUTH
     Route: 048
     Dates: start: 20160714, end: 20160728
  2. ASA [Concomitant]
     Active Substance: ASPIRIN
  3. ADVAIR HFA [Concomitant]
     Active Substance: FLUTICASONE PROPIONATE\SALMETEROL XINAFOATE
  4. OMEPRAZOLE. [Concomitant]
     Active Substance: OMEPRAZOLE
  5. TAMSULOSIN [Concomitant]
     Active Substance: TAMSULOSIN
  6. LEFLUNOMIDE. [Concomitant]
     Active Substance: LEFLUNOMIDE
  7. VITAMIN D3 [Concomitant]
     Active Substance: CHOLECALCIFEROL
  8. ATORVASTATIN [Concomitant]
     Active Substance: ATORVASTATIN
  9. METORPROLOL [Concomitant]
  10. RANEXA [Concomitant]
     Active Substance: RANOLAZINE
  11. METHOTREXATE. [Concomitant]
     Active Substance: METHOTREXATE
  12. FOLIC ACID. [Concomitant]
     Active Substance: FOLIC ACID
  13. ISOSORBIDE. [Concomitant]
     Active Substance: ISOSORBIDE
  14. PULMICORT TURBUHALER [Concomitant]
     Active Substance: BUDESONIDE
  15. VALSARTAN. [Concomitant]
     Active Substance: VALSARTAN

REACTIONS (5)
  - Fall [None]
  - Ocular icterus [None]
  - Dyspnoea [None]
  - Somnolence [None]
  - Chromaturia [None]

NARRATIVE: CASE EVENT DATE: 201608
